FAERS Safety Report 6551721-6 (Version None)
Quarter: 2010Q1

REPORT INFORMATION
  Report Type: 
  Country: None (occurrence: None)
  Receive Date: 20100126
  Receipt Date: 20100121
  Transmission Date: 20100710
  Serious: Yes (Hospitalization)
  Sender: FDA-Public Use
  Company Number: US-ELI_LILLY_AND_COMPANY-US201001004636

PATIENT
  Sex: Female
  Weight: 80.726 kg

DRUGS (6)
  1. BYETTA [Suspect]
     Indication: TYPE 2 DIABETES MELLITUS
     Dosage: 5 UG, 2/D
     Route: 058
     Dates: start: 20090101, end: 20090101
  2. BYETTA [Suspect]
     Dosage: 10 UG, 2/D
     Route: 058
     Dates: start: 20090101, end: 20090501
  3. SYNTHROID [Concomitant]
     Indication: THYROID DISORDER
     Dosage: 100 MG, UNK
  4. LIPITOR [Concomitant]
     Dosage: 40 MG, DAILY (1/D)
  5. CARDIZEM [Concomitant]
     Dosage: 180 MG, UNK
  6. DIOVAN [Concomitant]
     Indication: BLOOD PRESSURE

REACTIONS (7)
  - DYSPNOEA [None]
  - HAEMATOCHEZIA [None]
  - HAEMATOCRIT DECREASED [None]
  - HAEMOGLOBIN DECREASED [None]
  - PNEUMONIA [None]
  - PRODUCTIVE COUGH [None]
  - PYREXIA [None]
